FAERS Safety Report 20547231 (Version 1)
Quarter: 2022Q1

REPORT INFORMATION
  Report Type: 
  Country: BR (occurrence: BR)
  Receive Date: 20220303
  Receipt Date: 20220303
  Transmission Date: 20220423
  Serious: Yes (Hospitalization)
  Sender: FDA-Public Use
  Company Number: BR-AstraZeneca-2022A084884

PATIENT
  Age: 0 Year
  Sex: Female
  Weight: 5 kg

DRUGS (6)
  1. SYNAGIS [Suspect]
     Active Substance: PALIVIZUMAB
     Indication: Product used for unknown indication
     Route: 030
     Dates: start: 202107
  2. SYNAGIS [Suspect]
     Active Substance: PALIVIZUMAB
     Route: 030
     Dates: start: 20211201
  3. FUROSEMIDE [Concomitant]
     Active Substance: FUROSEMIDE
     Indication: Cardiac disorder
     Route: 065
     Dates: start: 20220208
  4. SPIRONOLACTONE [Concomitant]
     Active Substance: SPIRONOLACTONE
     Indication: Cardiac disorder
     Route: 065
     Dates: start: 20220208
  5. PROPRANOLOL [Concomitant]
     Active Substance: PROPRANOLOL HYDROCHLORIDE
     Indication: Cardiac disorder
     Route: 065
     Dates: start: 20220208
  6. CAPTOPRIL [Concomitant]
     Active Substance: CAPTOPRIL
     Indication: Cardiac disorder
     Route: 065
     Dates: start: 20220208

REACTIONS (2)
  - Tetralogy of Fallot repair [Recovering/Resolving]
  - Medication error [Unknown]

NARRATIVE: CASE EVENT DATE: 20210101
